FAERS Safety Report 11327965 (Version 1)
Quarter: 2015Q3

REPORT INFORMATION
  Report Type: Spontaneous
  Country: US (occurrence: US)
  Receive Date: 20150731
  Receipt Date: 20150731
  Transmission Date: 20151125
  Serious: No
  Sender: FDA-Public Use
  Company Number: US-TARO-2014TAR00549

PATIENT
  Sex: Male
  Weight: 78.46 kg

DRUGS (4)
  1. LUMIGAN [Concomitant]
     Active Substance: BIMATOPROST
     Route: 031
  2. FLUOCINONIDE CREAM USP 0.05% [Suspect]
     Active Substance: FLUOCINONIDE
     Indication: PSORIASIS
     Dosage: UNK, AS NEEDED
     Route: 061
     Dates: start: 201405
  3. ATORVASTATIN [Concomitant]
     Active Substance: ATORVASTATIN
  4. LOSARTAN. [Concomitant]
     Active Substance: LOSARTAN

REACTIONS (1)
  - Skin exfoliation [Recovered/Resolved]

NARRATIVE: CASE EVENT DATE: 2014
